FAERS Safety Report 7460739-0 (Version None)
Quarter: 2011Q2

REPORT INFORMATION
  Report Type: 
  Country: None (occurrence: None)
  Receive Date: 20110505
  Receipt Date: 20110426
  Transmission Date: 20111010
  Serious: Yes (Hospitalization)
  Sender: FDA-Public Use
  Company Number: FR-PFIZER INC-FR-WYE-H17776810

PATIENT
  Age: 64 Year
  Sex: Male

DRUGS (7)
  1. LASIX [Concomitant]
  2. INSULIN DETEMIR [Concomitant]
  3. NICOBION [Concomitant]
  4. VITAMIN B1 AND B6 [Concomitant]
  5. CORDARONE [Suspect]
     Indication: ATRIAL FIBRILLATION
     Dosage: 200.0 MG, DAILY
     Route: 048
     Dates: start: 20060101, end: 20100501
  6. COVERSYL [Concomitant]
  7. ALDACTONE [Concomitant]

REACTIONS (2)
  - HYPERTHYROIDISM [None]
  - SEPSIS [None]
